FAERS Safety Report 7924065-5 (Version None)
Quarter: 2011Q4

REPORT INFORMATION
  Report Type: 
  Country: None (occurrence: None)
  Receive Date: 20111117
  Receipt Date: 20110214
  Transmission Date: 20120403
  Serious: No
  Sender: FDA-Public Use
  Company Number: US-AMGEN-USASP2011008541

PATIENT
  Sex: Male

DRUGS (4)
  1. NAPROXEN [Concomitant]
     Dosage: 500 MG, UNK
  2. XANAX [Concomitant]
     Dosage: .25 MG, UNK
  3. ENBREL [Suspect]
     Indication: PRODUCT USED FOR UNKNOWN INDICATION
     Dosage: 50 MG, QWK
  4. KLONOPIN [Concomitant]
     Dosage: .5 MG, UNK

REACTIONS (2)
  - SINUSITIS [None]
  - NASOPHARYNGITIS [None]
